FAERS Safety Report 25892374 (Version 1)
Quarter: 2025Q4

REPORT INFORMATION
  Report Type: Spontaneous
  Country: US (occurrence: US)
  Receive Date: 20251007
  Receipt Date: 20251007
  Transmission Date: 20260118
  Serious: Yes (Death, Disabling, Other)
  Sender: BAYER HEALTHCARE LLC
  Company Number: US-BAYER-2025A132242

PATIENT
  Sex: Male

DRUGS (2)
  1. LOTRIMIN ANTIFUNGAL (MICONAZOLE NITRATE) [Suspect]
     Active Substance: MICONAZOLE NITRATE
     Dosage: UNK
  2. TINACTIN [Suspect]
     Active Substance: TOLNAFTATE
     Dosage: UNK

REACTIONS (5)
  - Mesothelioma [Fatal]
  - Exposure to chemical pollution [None]
  - Injury [None]
  - Illness [None]
  - Disability [None]
